FAERS Safety Report 11436510 (Version 2)
Quarter: 2015Q3

REPORT INFORMATION
  Report Type: Spontaneous
  Country: US (occurrence: US)
  Receive Date: 20150821
  Receipt Date: 20150916
  Transmission Date: 20151125
  Serious: No
  Sender: FDA-Public Use
  Company Number: US-ELI_LILLY_AND_COMPANY-US201401007655

PATIENT
  Sex: Female

DRUGS (6)
  1. HUMALOG [Suspect]
     Active Substance: INSULIN LISPRO
     Dosage: 38 U, EACH EVENING
     Route: 065
  2. PRENATAL VITAMINS                  /01549301/ [Concomitant]
     Active Substance: VITAMINS
     Dosage: UNK
  3. HUMALOG [Suspect]
     Active Substance: INSULIN LISPRO
     Indication: TYPE 2 DIABETES MELLITUS
     Dosage: 26 U, EACH MORNING
     Route: 065
  4. HUMALOG [Suspect]
     Active Substance: INSULIN LISPRO
     Dosage: 24 U, QD
     Route: 065
  5. HUMULIN N [Suspect]
     Active Substance: INSULIN HUMAN
     Dosage: 60 U, EACH EVENING
     Route: 065
  6. HUMULIN N [Suspect]
     Active Substance: INSULIN HUMAN
     Indication: TYPE 2 DIABETES MELLITUS
     Dosage: 36 U, EACH MORNING
     Route: 065

REACTIONS (1)
  - Maternal exposure during pregnancy [Not Recovered/Not Resolved]
